FAERS Safety Report 9778002 (Version 1)
Quarter: 2013Q4

REPORT INFORMATION
  Report Type: Spontaneous
  Country: FR (occurrence: FR)
  Receive Date: 20131223
  Receipt Date: 20131223
  Transmission Date: 20140711
  Serious: Yes (Hospitalization)
  Sender: FDA-Public Use
  Company Number: FR-ASTRAZENECA-2013SE92510

PATIENT
  Age: 28801 Day
  Sex: Male

DRUGS (13)
  1. HYTACAND [Suspect]
     Indication: HYPERTENSION
     Route: 048
     Dates: start: 20131001, end: 20131120
  2. LASILIX SPECIAL [Suspect]
     Indication: HYPERTENSION
     Route: 048
     Dates: end: 20131001
  3. LASILIX SPECIAL [Suspect]
     Indication: HYPERTENSION
     Route: 048
     Dates: start: 20131001, end: 20131120
  4. AMLOR [Suspect]
     Indication: HYPERTENSION
     Route: 048
     Dates: end: 20131122
  5. AMLOR [Suspect]
     Indication: HYPERTENSION
     Route: 048
     Dates: start: 20131122, end: 20131125
  6. AMLOR [Suspect]
     Indication: HYPERTENSION
     Route: 048
     Dates: start: 20131125
  7. CARDENSIEL [Suspect]
     Indication: HYPERTENSION
     Route: 048
     Dates: end: 20131123
  8. CARDENSIEL [Suspect]
     Indication: HYPERTENSION
     Route: 048
     Dates: start: 20131123
  9. TAHOR [Concomitant]
  10. PLAVIX [Concomitant]
  11. SPECIAFOLDINE [Concomitant]
  12. KAYEXALATE [Concomitant]
  13. PRAXILENE [Concomitant]

REACTIONS (2)
  - Hypotension [Recovering/Resolving]
  - Renal failure [Recovering/Resolving]
